FAERS Safety Report 4350009-1 (Version None)
Quarter: 2004Q2

REPORT INFORMATION
  Report Type: 
  Country: None (occurrence: None)
  Receive Date: 20040428
  Receipt Date: 20040428
  Transmission Date: 20050107
  Serious: Yes (Hospitalization)
  Sender: FDA-Public Use
  Company Number: None

PATIENT

DRUGS (9)
  1. MORPHINE [Suspect]
     Indication: PAIN
     Dosage: 30 MG BID ORAL
     Route: 048
  2. EPOGEN [Concomitant]
  3. DEXAMETHASONE [Concomitant]
  4. DOCUSATE [Concomitant]
  5. LEVOFLOXACIN [Concomitant]
  6. OMEPRAZOLE [Concomitant]
  7. ROXICODONE [Concomitant]
  8. SENNOSIDES [Concomitant]
  9. THALIDOMIDE [Concomitant]

REACTIONS (2)
  - ACCIDENTAL OVERDOSE [None]
  - MENTAL STATUS CHANGES [None]
